FAERS Safety Report 11849935 (Version 4)
Quarter: 2016Q2

REPORT INFORMATION
  Report Type: Spontaneous
  Country: US (occurrence: US)
  Receive Date: 20151218
  Receipt Date: 20160404
  Transmission Date: 20160815
  Serious: Yes (Other)
  Sender: FDA-Public Use
  Company Number: US-PFIZER INC-2015437154

PATIENT
  Age: 48 Year
  Sex: Male

DRUGS (6)
  1. BACLOFEN. [Concomitant]
     Active Substance: BACLOFEN
     Dosage: 10 MG, UNK
     Dates: start: 200609
  2. RISPERIDONE. [Concomitant]
     Active Substance: RISPERIDONE
     Dosage: 0.25 MG, UNK
     Dates: start: 201510
  3. DILANTIN [Suspect]
     Active Substance: PHENYTOIN
     Indication: HUNTINGTON^S DISEASE
  4. FAMOTIDINE. [Concomitant]
     Active Substance: FAMOTIDINE
     Dosage: 100 MG, UNK
  5. MINOCYCLINE [Concomitant]
     Active Substance: MINOCYCLINE\MINOCYCLINE HYDROCHLORIDE
     Dosage: 50 MG, UNK
     Dates: start: 200609
  6. DILANTIN [Suspect]
     Active Substance: PHENYTOIN
     Indication: SEIZURE
     Dosage: 200 MG, DAILY
     Dates: start: 1978

REACTIONS (1)
  - Huntington^s disease [Not Recovered/Not Resolved]

NARRATIVE: CASE EVENT DATE: 200609
